FAERS Safety Report 16684357 (Version 1)
Quarter: 2019Q3

REPORT INFORMATION
  Report Type: Spontaneous
  Country: US (occurrence: US)
  Receive Date: 20190808
  Receipt Date: 20190808
  Transmission Date: 20191004
  Serious: No
  Sender: FDA-Public Use
  Company Number: US-BIOGEN-2019BI00771039

PATIENT
  Sex: Female

DRUGS (2)
  1. AVONEX [Suspect]
     Active Substance: INTERFERON BETA-1A
     Route: 065
     Dates: start: 20190801
  2. AVONEX [Suspect]
     Active Substance: INTERFERON BETA-1A
     Indication: MULTIPLE SCLEROSIS
     Route: 030

REACTIONS (8)
  - Peripheral swelling [Not Recovered/Not Resolved]
  - Injection site pain [Unknown]
  - Hypersensitivity [Unknown]
  - Injection site bruising [Not Recovered/Not Resolved]
  - Skin indentation [Not Recovered/Not Resolved]
  - Memory impairment [Unknown]
  - Tremor [Not Recovered/Not Resolved]
  - Injection site pruritus [Unknown]
